FAERS Safety Report 4739101-7 (Version None)
Quarter: 2005Q3

REPORT INFORMATION
  Report Type: 
  Country: None (occurrence: None)
  Receive Date: 20050810
  Receipt Date: 20050414
  Transmission Date: 20060218
  Serious: No
  Sender: FDA-Public Use
  Company Number: US-GLAXOSMITHKLINE-A0554241A

PATIENT
  Age: 40 Year
  Sex: Female

DRUGS (3)
  1. PAXIL CR [Suspect]
     Indication: DEPRESSION
     Dosage: 75MG PER DAY
     Route: 048
     Dates: start: 20020101, end: 20050328
  2. XANAX [Concomitant]
  3. TRAZODONE [Concomitant]

REACTIONS (6)
  - ANTISOCIAL BEHAVIOUR [None]
  - ASTHENIA [None]
  - CRYING [None]
  - HYPERHIDROSIS [None]
  - NERVOUSNESS [None]
  - TREMOR [None]
